FAERS Safety Report 25043992 (Version 6)
Quarter: 2025Q4

REPORT INFORMATION
  Report Type: Spontaneous
  Country: JP (occurrence: JP)
  Receive Date: 20250306
  Receipt Date: 20251118
  Transmission Date: 20260117
  Serious: Yes (Death, Life-Threatening, Hospitalization, Other)
  Sender: MERCK SHARP & DOHME LLC
  Company Number: JP-009507513-2258130

PATIENT
  Age: 86 Year
  Sex: Male

DRUGS (3)
  1. KEYTRUDA [Suspect]
     Active Substance: PEMBROLIZUMAB
     Indication: Transitional cell carcinoma
     Dosage: 200 MG, EVERY 3 WEEKS (Q3W)
     Route: 041
     Dates: start: 20250213, end: 20250213
  2. PADCEV [Suspect]
     Active Substance: ENFORTUMAB VEDOTIN-EJFV
     Indication: Transitional cell carcinoma
     Dosage: 1.25MG/KG
     Route: 041
     Dates: start: 20250213, end: 20250213
  3. PADCEV [Suspect]
     Active Substance: ENFORTUMAB VEDOTIN-EJFV
     Indication: Transitional cell carcinoma
     Dosage: 1 MG/KG
     Route: 041
     Dates: start: 20250220, end: 20250220

REACTIONS (16)
  - Death [Fatal]
  - Infusion related reaction [Unknown]
  - C-reactive protein increased [Unknown]
  - Pyrexia [Not Recovered/Not Resolved]
  - Blood calcium decreased [Unknown]
  - Swelling [Unknown]
  - Procalcitonin increased [Unknown]
  - Erythema [Unknown]
  - Cytokine release syndrome [Not Recovered/Not Resolved]
  - Blood sodium decreased [Unknown]
  - Hepatic function abnormal [Unknown]
  - Adrenal disorder [Unknown]
  - Drug eruption [Not Recovered/Not Resolved]
  - Septic shock [Unknown]
  - Therapy partial responder [Unknown]
  - Device occlusion [Unknown]

NARRATIVE: CASE EVENT DATE: 20250101
